FAERS Safety Report 6087886-2 (Version None)
Quarter: 2009Q1

REPORT INFORMATION
  Report Type: 
  Country: None (occurrence: None)
  Receive Date: 20090223
  Receipt Date: 20090220
  Transmission Date: 20090719
  Serious: Yes (Life-Threatening, Hospitalization)
  Sender: FDA-Public Use
  Company Number: JP-B.I. PHARMACEUTICALS,INC./RIDGEFIELD-2009-BP-01798NB

PATIENT
  Sex: Male

DRUGS (6)
  1. MICARDIS [Suspect]
     Indication: HYPERTENSION
     Dosage: 40MG
     Route: 048
     Dates: start: 20070824, end: 20090124
  2. BEZATOL SR [Suspect]
     Indication: HYPERLIPIDAEMIA
     Dosage: 200MG
     Route: 048
     Dates: start: 20080331, end: 20090129
  3. GASTER D [Concomitant]
     Indication: GASTRITIS
     Dosage: 20MG
     Route: 048
     Dates: start: 20070824, end: 20090129
  4. PLETAL [Concomitant]
     Route: 048
     Dates: start: 20070904, end: 20090119
  5. ZYLORIC [Concomitant]
     Route: 048
     Dates: end: 20090119
  6. ASPIRIN [Concomitant]
     Indication: CEREBRAL INFARCTION
     Dosage: 100MG
     Route: 048
     Dates: start: 20071119, end: 20090129

REACTIONS (1)
  - HEPATITIS ACUTE [None]
